FAERS Safety Report 6975812-0 (Version None)
Quarter: 2010Q3

REPORT INFORMATION
  Report Type: 
  Country: None (occurrence: None)
  Receive Date: 20100910
  Receipt Date: 20090410
  Transmission Date: 20110219
  Serious: No
  Sender: FDA-Public Use
  Company Number: US-WYE-H08923309

PATIENT
  Sex: Female

DRUGS (2)
  1. PRISTIQ [Suspect]
     Route: 048
     Dates: start: 20090409
  2. TRAMADOL HCL [Concomitant]

REACTIONS (3)
  - ABDOMINAL PAIN UPPER [None]
  - BURNING SENSATION [None]
  - PROCTALGIA [None]
